FAERS Safety Report 8501329-8 (Version None)
Quarter: 2012Q3

REPORT INFORMATION
  Report Type: 
  Country: None (occurrence: None)
  Receive Date: 20120710
  Receipt Date: 20120705
  Transmission Date: 20120928
  Serious: Yes (Hospitalization, Other)
  Sender: FDA-Public Use
  Company Number: US-ROXANE LABORATORIES, INC.-2012-RO-01520RO

PATIENT
  Age: 78 Year
  Sex: Male
  Weight: 85 kg

DRUGS (36)
  1. OXYCODONE AND ACETAMINOPHEN [Suspect]
     Indication: PAIN
  2. OXYCODONE AND ACETAMINOPHEN [Suspect]
  3. FUROSEMIDE [Suspect]
  4. CAPSAICIN CREAM [Concomitant]
     Dosage: 60 G
  5. DESIPRAMINE HCL [Concomitant]
     Dosage: 50 MG
  6. FERROUS SULFATE TAB [Concomitant]
     Dosage: 325 MG
  7. MORPHINE [Suspect]
     Indication: PAIN
  8. INSULIN [Suspect]
  9. DIPHENHYDRAMINE HCL [Suspect]
  10. DOCUSATE [Concomitant]
     Dosage: 250 MG
  11. FUROSEMIDE [Concomitant]
     Dosage: 20 MG
  12. METFORMIN HCL [Concomitant]
     Dosage: 1000 MG
  13. RANITIDINE [Concomitant]
     Dosage: 150 MG
  14. ACETAMINOPHEN [Concomitant]
     Dosage: 500 MG
  15. ALLOPURINOL [Concomitant]
     Dosage: 100 MG
  16. CINACALCET HYDROCHLORIDE [Concomitant]
     Dosage: 30 MG
  17. CLONIDINE [Concomitant]
     Dosage: 0.1 MG
  18. ERGOCALCIFEROL [Concomitant]
  19. NAPROXEN [Concomitant]
     Dosage: 500 MG
  20. OMEPRAZOLE [Concomitant]
     Dosage: 20 MG
  21. METFORMIN HCL [Suspect]
  22. CEFTRIAXONE [Suspect]
     Indication: URINARY TRACT INFECTION
  23. COLCHICINE [Concomitant]
     Dosage: 0.6 MG
  24. LISINOPRIL [Concomitant]
     Dosage: 2.5 MG
  25. VARDENAFIL HYDROCHLORIDE (LEVITRA) [Concomitant]
     Dosage: 20 MG
  26. VITAMIN E [Concomitant]
  27. ASPIRIN [Concomitant]
     Dosage: 81 MG
  28. DESIPRAMINE HCL [Suspect]
  29. BACLOFEN [Concomitant]
     Dosage: 10 MG
  30. FINASTERIDE [Concomitant]
     Dosage: 5 MG
  31. GABAPENTIN [Concomitant]
     Dosage: 100 MG
  32. GABAPENTIN [Suspect]
  33. CIPROFLOXACIN [Suspect]
     Indication: URINARY TRACT INFECTION
  34. HYDROCODONE BITARTRATE + ACETAMINOPHEN [Concomitant]
  35. SIMVASTATIN [Concomitant]
     Dosage: 80 MG
  36. TERAZOSIN HCL [Concomitant]
     Dosage: 2 MG

REACTIONS (5)
  - DRUG ADMINISTRATION ERROR [None]
  - CONFUSIONAL STATE [None]
  - DELIRIUM [None]
  - AGITATION [None]
  - URINARY TRACT INFECTION [None]
